FAERS Safety Report 7640232-2 (Version None)
Quarter: 2011Q3

REPORT INFORMATION
  Report Type: 
  Country: None (occurrence: None)
  Receive Date: 20110728
  Receipt Date: 20110718
  Transmission Date: 20111222
  Serious: Yes (Life-Threatening, Hospitalization)
  Sender: FDA-Public Use
  Company Number: US-BAYER-201040898NA

PATIENT
  Age: 27 Year
  Sex: Female
  Weight: 80.998 kg

DRUGS (5)
  1. PREVACID [Concomitant]
     Dosage: 30 MG, CONT
     Route: 048
  2. AZITHROMYCIN [Concomitant]
     Indication: OTITIS MEDIA
     Dosage: 250 MG, BID
     Route: 048
     Dates: start: 20081111, end: 20081111
  3. DROSPIRENONE AND ETHINYL ESTRADIOL [Suspect]
     Indication: CONTRACEPTION
     Dosage: UNK
     Route: 048
     Dates: start: 20080801, end: 20081101
  4. AZITHROMYCIN [Concomitant]
     Dosage: 250 MG, QD
     Route: 048
     Dates: start: 20081112, end: 20081115
  5. YAZ [Suspect]
     Indication: CONTRACEPTION
     Dosage: UNK
     Route: 048
     Dates: start: 20080801, end: 20081101

REACTIONS (5)
  - PAIN [None]
  - FATIGUE [None]
  - PULMONARY EMBOLISM [None]
  - DYSPNOEA [None]
  - CHEST PAIN [None]
